FAERS Safety Report 5924595-1 (Version None)
Quarter: 2008Q4

REPORT INFORMATION
  Report Type: 
  Country: None (occurrence: None)
  Receive Date: 20081020
  Receipt Date: 20081009
  Transmission Date: 20090506
  Serious: Yes (Other)
  Sender: FDA-Public Use
  Company Number: BE-PFIZER INC-2008086043

PATIENT
  Age: 51 Year
  Sex: Female

DRUGS (2)
  1. FELDENE [Suspect]
     Indication: PAIN
     Route: 048
     Dates: start: 20081001, end: 20081001
  2. CITALOPRAM HYDROBROMIDE [Concomitant]

REACTIONS (2)
  - BLISTER [None]
  - BURNING SENSATION [None]
